FAERS Safety Report 10146409 (Version 2)
Quarter: 2014Q2

REPORT INFORMATION
  Report Type: Spontaneous
  Country: US (occurrence: US)
  Receive Date: 20140501
  Receipt Date: 20140609
  Transmission Date: 20141212
  Serious: Yes (Death)
  Sender: FDA-Public Use
  Company Number: US-PFIZER INC-2014116600

PATIENT
  Sex: 0

DRUGS (3)
  1. VFEND [Suspect]
     Dosage: UNK
  2. VFEND [Suspect]
     Dosage: UNK
  3. OXYCONTIN [Concomitant]
     Dosage: UNK

REACTIONS (1)
  - Leukaemia [Fatal]
